FAERS Safety Report 4548052-2 (Version None)
Quarter: 2005Q1

REPORT INFORMATION
  Report Type: 
  Country: None (occurrence: None)
  Receive Date: 20050104
  Receipt Date: 20050104
  Transmission Date: 20050727
  Serious: Yes (Other)
  Sender: FDA-Public Use
  Company Number: None

PATIENT
  Age: 23 Year
  Sex: Female
  Weight: 54.4316 kg

DRUGS (2)
  1. PROZAC [Suspect]
     Indication: DEPRESSION
     Dosage: 20MG?   ORAL
     Route: 048
     Dates: start: 19930101, end: 19941231
  2. ZOLOFT [Suspect]
     Indication: DEPRESSION
     Dosage: 20MG?   ORAL
     Route: 048
     Dates: start: 19930101, end: 19941231

REACTIONS (6)
  - ABNORMAL BEHAVIOUR [None]
  - DRUG ABUSER [None]
  - MENTAL DISORDER [None]
  - PARENT-CHILD PROBLEM [None]
  - PERSONALITY CHANGE [None]
  - SUICIDE ATTEMPT [None]
